FAERS Safety Report 8184306-9 (Version None)
Quarter: 2012Q1

REPORT INFORMATION
  Report Type: 
  Country: None (occurrence: None)
  Receive Date: 20120305
  Receipt Date: 20120228
  Transmission Date: 20120608
  Serious: Yes (Hospitalization, Other)
  Sender: FDA-Public Use
  Company Number: BR-ABBOTT-12P-020-0904789-00

PATIENT
  Sex: Female

DRUGS (3)
  1. HUMIRA [Suspect]
     Indication: CROHN'S DISEASE
     Dates: start: 20111101
  2. MESALAZINA [Suspect]
     Dates: start: 20111001, end: 20120206
  3. MESALAZINA [Suspect]
     Indication: DIARRHOEA
     Dates: start: 20110901, end: 20111001

REACTIONS (7)
  - ABDOMINAL DISTENSION [None]
  - INTESTINAL STENOSIS [None]
  - CROHN'S DISEASE [None]
  - NAUSEA [None]
  - VOMITING [None]
  - ABDOMINAL PAIN UPPER [None]
  - GASTROINTESTINAL NECROSIS [None]
